FAERS Safety Report 19498226 (Version 1)
Quarter: 2021Q3

REPORT INFORMATION
  Report Type: Report from Study
  Country: US (occurrence: US)
  Receive Date: 20210706
  Receipt Date: 20210706
  Transmission Date: 20211014
  Serious: Yes (Hospitalization)
  Sender: FDA-Public Use
  Company Number: US-JNJFOC-20210704043

PATIENT
  Age: 59 Year
  Sex: Female
  Weight: 77.3 kg

DRUGS (2)
  1. ADCIRCA [Concomitant]
     Active Substance: TADALAFIL
  2. SELEXIPAG [Suspect]
     Active Substance: SELEXIPAG
     Indication: PULMONARY HYPERTENSION
     Dosage: UPTRAVI 1600 MCG ORALLY 2 TIMES DAILY
     Route: 048

REACTIONS (4)
  - Viral infection [Unknown]
  - Pneumonia [Unknown]
  - Bacterial infection [Unknown]
  - Fluid retention [Unknown]

NARRATIVE: CASE EVENT DATE: 20210622
